FAERS Safety Report 19364844 (Version 1)
Quarter: 2021Q2

REPORT INFORMATION
  Report Type: Spontaneous
  Country: SK (occurrence: SK)
  Receive Date: 20210602
  Receipt Date: 20210602
  Transmission Date: 20210717
  Serious: Yes (Other)
  Sender: FDA-Public Use
  Company Number: SK-BAYER-2021-150753

PATIENT
  Sex: Female

DRUGS (13)
  1. LYRICA [Concomitant]
     Active Substance: PREGABALIN
     Dosage: 150 MG, BID
  2. NEUROMULTIVIT [Concomitant]
     Active Substance: CYANOCOBALAMIN\PYRIDOXINE\THIAMINE
     Dosage: 1 DF
  3. PRENESSA [Concomitant]
     Active Substance: PERINDOPRIL
     Dosage: 4 MG, QD
  4. ANOPYRIN [Concomitant]
     Active Substance: ASPIRIN
     Dosage: 100 MG, QD
  5. VIGANTOL OIL [Concomitant]
  6. TRUSOPT [Concomitant]
     Active Substance: DORZOLAMIDE HYDROCHLORIDE
  7. ATORIS [Concomitant]
     Active Substance: ATORVASTATIN CALCIUM
     Dosage: 20 MG, QD
  8. TALLITON [Concomitant]
     Active Substance: CARVEDILOL
     Dosage: 6.25 MG, BID
  9. BETAFERON [Suspect]
     Active Substance: INTERFERON BETA-1B
     Dosage: UNK
     Dates: start: 2010, end: 2017
  10. BACLOFEN. [Concomitant]
     Active Substance: BACLOFEN
     Dosage: 10 MG, BID
  11. VEROSPIRON [Concomitant]
     Active Substance: SPIRONOLACTONE
     Dosage: 25 MG, QD
  12. DORETA [Concomitant]
     Active Substance: ACETAMINOPHEN\TRAMADOL HYDROCHLORIDE
     Dosage: 75 MG
  13. CAVINTON [Concomitant]
     Active Substance: VINPOCETINE
     Dosage: 10 MG, BID

REACTIONS (1)
  - Expanded disability status scale score increased [None]
